FAERS Safety Report 17117787 (Version 2)
Quarter: 2019Q4

REPORT INFORMATION
  Report Type: Spontaneous
  Country: PS (occurrence: PS)
  Receive Date: 20191205
  Receipt Date: 20191219
  Transmission Date: 20200122
  Serious: Yes (Death, Other)
  Sender: FDA-Public Use
  Company Number: PS-INCYTE CORPORATION-2019IN011886

PATIENT

DRUGS (2)
  1. HYDROXYUREA. [Concomitant]
     Active Substance: HYDROXYUREA
     Indication: WHITE BLOOD CELL COUNT INCREASED
     Dosage: UNK
     Route: 048
  2. JAKAVI [Suspect]
     Active Substance: RUXOLITINIB
     Indication: MYELOFIBROSIS
     Dosage: 20 MG, BID (20 MG X 2)
     Route: 048

REACTIONS (19)
  - Pyrexia [Unknown]
  - Palpitations [Unknown]
  - Acute respiratory distress syndrome [Fatal]
  - Arrhythmia [Unknown]
  - Hypotension [Unknown]
  - Pneumonia [Fatal]
  - Disseminated intravascular coagulation [Fatal]
  - Leukocytosis [Unknown]
  - Sepsis [Fatal]
  - Anaemia [Unknown]
  - Cough [Unknown]
  - Wheezing [Unknown]
  - Dyspnoea [Unknown]
  - Polycythaemia [Unknown]
  - Atrial fibrillation [Unknown]
  - Myelofibrosis [Fatal]
  - Thrombocytopenia [Unknown]
  - Crepitations [Unknown]
  - Pleural effusion [Unknown]
